FAERS Safety Report 13282464 (Version 1)
Quarter: 2017Q1

REPORT INFORMATION
  Report Type: Spontaneous
  Country: US (occurrence: US)
  Receive Date: 20170301
  Receipt Date: 20170301
  Transmission Date: 20170428
  Serious: No
  Sender: FDA-Public Use
  Company Number: US-BAUSCH-BL-2016-002594

PATIENT
  Age: 45 Year
  Sex: Male

DRUGS (1)
  1. VISUDYNE [Suspect]
     Active Substance: VERTEPORFIN
     Indication: RETINOPATHY
     Route: 042
     Dates: start: 20160128, end: 20160128

REACTIONS (1)
  - Vein collapse [Recovered/Resolved]

NARRATIVE: CASE EVENT DATE: 20160128
